FAERS Safety Report 4437781-7 (Version None)
Quarter: 2004Q3

REPORT INFORMATION
  Report Type: 
  Country: None (occurrence: None)
  Receive Date: 20040827
  Receipt Date: 20040816
  Transmission Date: 20050211
  Serious: Yes (Hospitalization)
  Sender: FDA-Public Use
  Company Number: 04P-130-0267045-00

PATIENT
  Age: 21 Year
  Sex: Female

DRUGS (2)
  1. ERYTHROMYCIN STEARATE [Suspect]
     Indication: INFECTION
     Dosage: 15 ML, 1 IN 1 D, ORAL
     Route: 048
     Dates: start: 20040626, end: 20040627
  2. CEFACLOR [Concomitant]

REACTIONS (5)
  - ERYTHEMA [None]
  - HYPOAESTHESIA [None]
  - HYPOKINESIA [None]
  - PARAESTHESIA [None]
  - PRURITUS [None]
